FAERS Safety Report 6943146 (Version 11)
Quarter: 2014Q2

REPORT INFORMATION
  Report Type: Spontaneous
  Country: US (occurrence: US)
  Receive Date: 20090317
  Receipt Date: 20140506
  Transmission Date: 20141212
  Serious: Yes (Other)
  Sender: FDA-Public Use
  Company Number: PHEH2009US02426

PATIENT
  Age: 64 Year
  Sex: Female
  Weight: 54.42 kg

DRUGS (6)
  1. ZOMETA [Suspect]
     Indication: METASTASES TO BONE
     Route: 042
     Dates: start: 20050303
  2. ZOMETA [Suspect]
     Indication: NEOPLASM MALIGNANT
  3. TAXOTERE [Concomitant]
     Indication: BREAST CANCER
  4. GEMCITABINE [Concomitant]
  5. DECADRON                                /NET/ [Concomitant]
  6. VICODIN [Concomitant]

REACTIONS (46)
  - Skin papilloma [Unknown]
  - Osteonecrosis of jaw [Recovering/Resolving]
  - Jaw fracture [Unknown]
  - Pain [Unknown]
  - Oral discomfort [Unknown]
  - Physical disability [Unknown]
  - Deformity [Unknown]
  - Dysphagia [Unknown]
  - Emotional distress [Unknown]
  - Anxiety [Unknown]
  - Injury [Unknown]
  - Life expectancy shortened [Unknown]
  - Anhedonia [Unknown]
  - Nodule [Recovered/Resolved]
  - Infection [Recovered/Resolved]
  - Bone disorder [Unknown]
  - Tooth disorder [Unknown]
  - Osteosclerosis [Unknown]
  - Bone erosion [Unknown]
  - Actinomycosis [Unknown]
  - Submandibular mass [Unknown]
  - Electrocardiogram QRS complex prolonged [Unknown]
  - Bifascicular block [Unknown]
  - Electrocardiogram ST segment abnormal [Unknown]
  - Bundle branch block right [Unknown]
  - Supraventricular extrasystoles [Unknown]
  - Sinus bradycardia [Unknown]
  - Ulcer [Unknown]
  - Pain in jaw [Unknown]
  - Intervertebral disc degeneration [Unknown]
  - Peripheral swelling [Unknown]
  - Dysgeusia [Unknown]
  - Dry skin [Unknown]
  - Arteriosclerosis [Unknown]
  - Tendonitis [Unknown]
  - Dermatitis [Unknown]
  - Fistula [Unknown]
  - Implant site scar [Unknown]
  - Osteitis [Unknown]
  - Osteopenia [Unknown]
  - Chronic obstructive pulmonary disease [Unknown]
  - Oral disorder [Unknown]
  - Cystitis [Unknown]
  - Mass [Unknown]
  - Lung hyperinflation [Unknown]
  - Chest pain [Unknown]
